FAERS Safety Report 7924393-3 (Version None)
Quarter: 2011Q4

REPORT INFORMATION
  Report Type: 
  Country: None (occurrence: None)
  Receive Date: 20111117
  Receipt Date: 20110321
  Transmission Date: 20120403
  Serious: No
  Sender: FDA-Public Use
  Company Number: US-AMGEN-USASP2011015385

PATIENT
  Age: 39 Year
  Sex: Female

DRUGS (1)
  1. ENBREL [Suspect]
     Indication: RHEUMATOID ARTHRITIS
     Dosage: 50 MG, QWK
     Dates: start: 20101022, end: 20110310

REACTIONS (7)
  - LYMPHADENOPATHY [None]
  - OROPHARYNGEAL PAIN [None]
  - MUSCULOSKELETAL PAIN [None]
  - CHEST DISCOMFORT [None]
  - COUGH [None]
  - MUSCULOSKELETAL STIFFNESS [None]
  - NASAL ULCER [None]
